FAERS Safety Report 6582416-0 (Version None)
Quarter: 2010Q1

REPORT INFORMATION
  Report Type: 
  Country: None (occurrence: None)
  Receive Date: 20100216
  Receipt Date: 20100201
  Transmission Date: 20100710
  Serious: Yes (Hospitalization)
  Sender: FDA-Public Use
  Company Number: PHHY2010TR04901

PATIENT
  Sex: Female

DRUGS (5)
  1. TRILEPTAL [Suspect]
     Indication: EPILEPSY
     Dosage: UNK
     Route: 048
  2. DEPAKENE [Concomitant]
     Indication: EPILEPSY
     Dosage: 500 MG, QID
  3. BETASERC [Concomitant]
     Dosage: 20 MG, BID
  4. NOOTROPIL [Concomitant]
     Dosage: THREE TIMES DAILY
  5. ECOPIRIN [Concomitant]
     Dosage: 100 MG, QD

REACTIONS (19)
  - BLOOD ELECTROLYTES DECREASED [None]
  - CONVULSION [None]
  - DIZZINESS [None]
  - EXTENSOR PLANTAR RESPONSE [None]
  - FOAMING AT MOUTH [None]
  - HYPONATRAEMIA [None]
  - HYPOREFLEXIA [None]
  - MOTOR DYSFUNCTION [None]
  - MUSCLE CONTRACTIONS INVOLUNTARY [None]
  - NAUSEA [None]
  - SOMNOLENCE [None]
  - STARING [None]
  - SYNCOPE [None]
  - TRANSAMINASES DECREASED [None]
  - TREATMENT NONCOMPLIANCE [None]
  - TRISMUS [None]
  - URINE SODIUM INCREASED [None]
  - VERTIGO [None]
  - VOMITING [None]
